FAERS Safety Report 11777347 (Version 1)
Quarter: 2015Q4

REPORT INFORMATION
  Report Type: Spontaneous
  Country: US (occurrence: US)
  Receive Date: 20151125
  Receipt Date: 20151125
  Transmission Date: 20160304
  Serious: No
  Sender: FDA-Public Use
  Company Number: US-MALLINCKRODT-T201504171

PATIENT
  Sex: Female

DRUGS (1)
  1. GABLOFEN [Suspect]
     Active Substance: BACLOFEN
     Indication: MUSCLE SPASTICITY
     Dosage: 180.3 MCG/DAY
     Route: 037
     Dates: start: 20140121

REACTIONS (6)
  - Hypoaesthesia [Unknown]
  - Paraesthesia [Unknown]
  - Muscular weakness [Unknown]
  - Fatigue [Unknown]
  - Pollakiuria [Unknown]
  - Migraine [Unknown]
